FAERS Safety Report 6096528-1 (Version None)
Quarter: 2009Q1

REPORT INFORMATION
  Report Type: 
  Country: None (occurrence: None)
  Receive Date: 20090225
  Receipt Date: 20090225
  Transmission Date: 20090719
  Serious: Yes (Hospitalization)
  Sender: FDA-Public Use
  Company Number: None

PATIENT
  Sex: Male
  Weight: 74.8435 kg

DRUGS (1)
  1. FLOMAX [Suspect]
     Indication: URINARY RETENTION POSTOPERATIVE
     Dosage: 0.4 MG ONCE DAILY BY MOUTH
     Route: 048
     Dates: start: 20090203, end: 20090206

REACTIONS (2)
  - DRUG INEFFECTIVE [None]
  - PAINFUL ERECTION [None]
